FAERS Safety Report 8814322 (Version 3)
Quarter: 2013Q3

REPORT INFORMATION
  Report Type: Report from Study
  Country: US (occurrence: US)
  Receive Date: 20120928
  Receipt Date: 20130808
  Transmission Date: 20140515
  Serious: Yes (Hospitalization, Other)
  Sender: FDA-Public Use
  Company Number: US-BAYER-2012-087342

PATIENT
  Age: 45 Year
  Sex: Female
  Weight: 81 kg

DRUGS (5)
  1. NEXAVAR [Suspect]
     Indication: HEPATIC CANCER
     Dosage: 200 MG, BID
     Dates: start: 20120215, end: 20120816
  2. LISINOPRIL [Concomitant]
     Dosage: 10 MG, QD
     Route: 048
  3. NASAL PREPARATIONS [Concomitant]
     Indication: MIGRAINE
     Dosage: UNK
     Dates: start: 20120816
  4. LORAZEPAM [Concomitant]
     Indication: ANXIETY
     Dosage: 0.5 MG, HS (PRN)
     Route: 048
  5. SUDAFED [Concomitant]
     Dosage: 60 MG, QID (Q 6HR)
     Route: 048

REACTIONS (13)
  - Cerebral infarction [Recovered/Resolved with Sequelae]
  - Myocardial infarction [None]
  - Hypertension [None]
  - Speech disorder [Recovered/Resolved with Sequelae]
  - Sensation of heaviness [Recovered/Resolved with Sequelae]
  - Dizziness [Recovered/Resolved with Sequelae]
  - Hypoaesthesia [Recovered/Resolved with Sequelae]
  - Hypoaesthesia [Recovered/Resolved with Sequelae]
  - Photosensitivity reaction [Recovered/Resolved with Sequelae]
  - Hemiparesis [Recovered/Resolved with Sequelae]
  - Hypotension [None]
  - Migraine [Recovered/Resolved]
  - Migraine [None]
